FAERS Safety Report 8011652-1 (Version None)
Quarter: 2011Q4

REPORT INFORMATION
  Report Type: 
  Country: None (occurrence: None)
  Receive Date: 20111228
  Receipt Date: 20111221
  Transmission Date: 20120403
  Serious: Yes (Other)
  Sender: FDA-Public Use
  Company Number: US-ELI_LILLY_AND_COMPANY-US201111007092

PATIENT
  Sex: Male

DRUGS (7)
  1. HUMALOG [Suspect]
     Dosage: SLIDING SCALE
  2. HUMULIN 70/30 [Suspect]
     Indication: TYPE 1 DIABETES MELLITUS
     Dosage: 55 U, BID
     Dates: start: 20111021
  3. NOVOLIN N [Concomitant]
  4. HUMULIN 70/30 [Suspect]
     Dosage: 55 U, BID
  5. HUMALOG [Suspect]
     Indication: TYPE 1 DIABETES MELLITUS
  6. HUMALOG MIX 75/25 [Suspect]
     Indication: TYPE 1 DIABETES MELLITUS
  7. ORAL ANTIDIABETICS [Concomitant]

REACTIONS (8)
  - BLINDNESS UNILATERAL [None]
  - EYE OPERATION [None]
  - VISUAL FIELD DEFECT [None]
  - BLOOD GLUCOSE INCREASED [None]
  - ANIMAL BITE [None]
  - RENAL DISORDER [None]
  - VISUAL ACUITY REDUCED [None]
  - INCORRECT DOSE ADMINISTERED [None]
